FAERS Safety Report 7533773-X (Version None)
Quarter: 2011Q2

REPORT INFORMATION
  Report Type: 
  Country: None (occurrence: None)
  Receive Date: 20110608
  Receipt Date: 20110531
  Transmission Date: 20111010
  Serious: Yes (Hospitalization, Disabling, Other)
  Sender: FDA-Public Use
  Company Number: RO-ABBOTT-11P-135-0723615-00

PATIENT
  Sex: Male
  Weight: 60 kg

DRUGS (3)
  1. HUMIRA [Suspect]
     Indication: ANKYLOSING SPONDYLITIS
     Route: 058
     Dates: start: 20100901, end: 20110201
  2. HUMIRA [Suspect]
     Indication: PSORIATIC ARTHROPATHY
  3. METHOTREXATE [Suspect]
     Indication: PSORIATIC ARTHROPATHY
     Route: 030
     Dates: start: 19940101, end: 20110201

REACTIONS (22)
  - SPLENIC NEOPLASM MALIGNANCY UNSPECIFIED [None]
  - NAUSEA [None]
  - WEIGHT DECREASED [None]
  - PERITONEAL TUBERCULOSIS [None]
  - PLEURAL EFFUSION [None]
  - HAEMOTHORAX [None]
  - MALAISE [None]
  - ASCITES [None]
  - DYSPNOEA [None]
  - REFLUX OESOPHAGITIS [None]
  - HEPATIC NEOPLASM [None]
  - FLATULENCE [None]
  - PETECHIAE [None]
  - HEPATIC FAILURE [None]
  - PURULENCE [None]
  - SKIN ULCER [None]
  - ABDOMINAL DISTENSION [None]
  - HAEMORRHAGIC ANAEMIA [None]
  - CONTUSION [None]
  - HAEMORRHAGIC DISORDER [None]
  - GASTRITIS [None]
  - VOMITING [None]
